FAERS Safety Report 8578882-1 (Version None)
Quarter: 2012Q3

REPORT INFORMATION
  Report Type: 
  Country: None (occurrence: None)
  Receive Date: 20120808
  Receipt Date: 20120730
  Transmission Date: 20120928
  Serious: Yes (Other)
  Sender: FDA-Public Use
  Company Number: GB-JNJFOC-20120704172

PATIENT
  Sex: Female
  Weight: 42 kg

DRUGS (12)
  1. TOPIRAMATE [Suspect]
     Indication: EPILEPSY
     Route: 048
     Dates: start: 20091130, end: 20100623
  2. TOPAMAX [Suspect]
     Route: 048
     Dates: start: 20110830, end: 20110830
  3. KEPPRA [Concomitant]
     Indication: PRODUCT USED FOR UNKNOWN INDICATION
     Route: 065
     Dates: start: 20110831
  4. FOLIC ACID [Concomitant]
     Indication: PRODUCT USED FOR UNKNOWN INDICATION
     Route: 065
     Dates: start: 20091130
  5. TOPIRAMATE [Suspect]
     Route: 048
     Dates: start: 20100915, end: 20100915
  6. FLUOXETINE HCL [Suspect]
     Indication: PRODUCT USED FOR UNKNOWN INDICATION
     Route: 065
     Dates: start: 20101018, end: 20110831
  7. CLONAZEPAM [Concomitant]
     Indication: PRODUCT USED FOR UNKNOWN INDICATION
     Route: 065
     Dates: start: 20091130
  8. KEPPRA [Concomitant]
     Route: 065
     Dates: start: 20110727
  9. CLONAZEPAM [Concomitant]
     Route: 065
     Dates: start: 20100915
  10. TOPAMAX [Suspect]
     Indication: EPILEPSY
     Route: 048
     Dates: start: 20070703
  11. TOPAMAX [Suspect]
     Route: 048
     Dates: start: 20101025
  12. ANTIDEPRESSANTS [Concomitant]
     Indication: PRODUCT USED FOR UNKNOWN INDICATION
     Route: 065

REACTIONS (16)
  - DIARRHOEA [None]
  - SENSITIVITY OF TEETH [None]
  - FEELING ABNORMAL [None]
  - DEPRESSION [None]
  - BREATH ODOUR [None]
  - TOOTH LOSS [None]
  - ABDOMINAL PAIN UPPER [None]
  - MOOD SWINGS [None]
  - DECREASED APPETITE [None]
  - IRRITABLE BOWEL SYNDROME [None]
  - PARAESTHESIA [None]
  - EMOTIONAL POVERTY [None]
  - SOMNOLENCE [None]
  - PALPITATIONS [None]
  - DYSGEUSIA [None]
  - WEIGHT DECREASED [None]
